FAERS Safety Report 5558251-9 (Version None)
Quarter: 2007Q4

REPORT INFORMATION
  Report Type: 
  Country: None (occurrence: None)
  Receive Date: 20071214
  Receipt Date: 20071203
  Transmission Date: 20080405
  Serious: Yes (Other)
  Sender: FDA-Public Use
  Company Number: US-PFIZER INC-2007087102

PATIENT
  Sex: Female
  Weight: 83 kg

DRUGS (9)
  1. CHANTIX [Suspect]
     Indication: SMOKING CESSATION THERAPY
  2. KLONOPIN [Suspect]
     Indication: BIPOLAR DISORDER
  3. KLONOPIN [Suspect]
     Indication: ANXIETY
  4. LIPITOR [Concomitant]
  5. TRICOR [Concomitant]
  6. LAMICTAL [Concomitant]
  7. REMERON [Concomitant]
  8. GLUCOPHAGE [Concomitant]
  9. GEODON [Concomitant]

REACTIONS (6)
  - ANXIETY [None]
  - DYSARTHRIA [None]
  - INSOMNIA [None]
  - SOMNOLENCE [None]
  - TRANSIENT ISCHAEMIC ATTACK [None]
  - WEIGHT ABNORMAL [None]
